FAERS Safety Report 25149351 (Version 1)
Quarter: 2025Q2

REPORT INFORMATION
  Report Type: Spontaneous
  Country: US (occurrence: US)
  Receive Date: 20250402
  Receipt Date: 20250402
  Transmission Date: 20250717
  Serious: Yes (Hospitalization)
  Sender: MYLAN
  Company Number: US-MYLANLABS-2025M1025846

PATIENT
  Age: 84 Year
  Sex: Female

DRUGS (12)
  1. POSACONAZOLE [Interacting]
     Active Substance: POSACONAZOLE
     Indication: Antifungal prophylaxis
  2. POSACONAZOLE [Interacting]
     Active Substance: POSACONAZOLE
     Route: 065
  3. POSACONAZOLE [Interacting]
     Active Substance: POSACONAZOLE
     Route: 065
  4. POSACONAZOLE [Interacting]
     Active Substance: POSACONAZOLE
  5. METOPROLOL [Suspect]
     Active Substance: METOPROLOL
     Indication: Atrial fibrillation
  6. METOPROLOL [Suspect]
     Active Substance: METOPROLOL
     Route: 065
  7. METOPROLOL [Suspect]
     Active Substance: METOPROLOL
     Route: 065
  8. METOPROLOL [Suspect]
     Active Substance: METOPROLOL
  9. DIGOXIN [Interacting]
     Active Substance: DIGOXIN
     Indication: Atrial fibrillation
  10. DIGOXIN [Interacting]
     Active Substance: DIGOXIN
     Route: 065
  11. DIGOXIN [Interacting]
     Active Substance: DIGOXIN
     Route: 065
  12. DIGOXIN [Interacting]
     Active Substance: DIGOXIN

REACTIONS (5)
  - Drug ineffective [Unknown]
  - Toxicity to various agents [Recovered/Resolved]
  - Sinus bradycardia [Recovered/Resolved]
  - Atrioventricular block second degree [Recovered/Resolved]
  - Drug interaction [Recovered/Resolved]
